FAERS Safety Report 21852142 (Version 2)
Quarter: 2023Q1

REPORT INFORMATION
  Report Type: Spontaneous
  Country: BE (occurrence: BE)
  Receive Date: 20230112
  Receipt Date: 20230124
  Transmission Date: 20230418
  Serious: Yes (Death, Hospitalization, Disabling, Other)
  Sender: FDA-Public Use
  Company Number: BE-CELLTRION INC.-2023BE000130

PATIENT

DRUGS (15)
  1. RITUXIMAB [Suspect]
     Active Substance: RITUXIMAB
     Indication: Optic neuritis
     Dosage: UNK
  2. RITUXIMAB [Suspect]
     Active Substance: RITUXIMAB
     Indication: Lung adenocarcinoma
  3. METHOTREXATE [Suspect]
     Active Substance: METHOTREXATE
     Indication: Optic neuritis
     Dosage: UNK
  4. METHOTREXATE [Suspect]
     Active Substance: METHOTREXATE
     Indication: Lung adenocarcinoma
  5. METHYLPREDNISOLONE [Suspect]
     Active Substance: METHYLPREDNISOLONE
     Indication: Optic neuritis
     Dosage: 1 GRAM, QD
  6. METHYLPREDNISOLONE [Suspect]
     Active Substance: METHYLPREDNISOLONE
     Dosage: TWO COURSES FOR 5 DAYS WITH ONE-WEEK INTERVAL
     Route: 042
  7. PFIZER-BIONTECH COVID-19 VACCINE [Concomitant]
     Active Substance: TOZINAMERAN
     Indication: COVID-19 prophylaxis
     Dosage: UNK (UNK UNK, UNKNOWN)
  8. PEMBROLIZUMAB [Concomitant]
     Active Substance: PEMBROLIZUMAB
     Indication: Lung adenocarcinoma
     Dosage: UNK (MONOTHERAPY, 4 CYCLES)
  9. PEMBROLIZUMAB [Concomitant]
     Active Substance: PEMBROLIZUMAB
     Indication: Metastases to central nervous system
     Dosage: 4 CYCLES
  10. CISPLATIN [Concomitant]
     Active Substance: CISPLATIN
     Indication: Metastases to central nervous system
     Dosage: UNK (UNK UNK, UNKNOWN)
  11. CISPLATIN [Concomitant]
     Active Substance: CISPLATIN
     Indication: Lung adenocarcinoma
     Dosage: UNK
  12. PEMETREXED [Concomitant]
     Active Substance: PEMETREXED
     Indication: Lung adenocarcinoma
     Dosage: UNK
     Route: 005
  13. PEMETREXED [Concomitant]
     Active Substance: PEMETREXED
     Indication: Metastases to central nervous system
     Dosage: UNK (UNK UNK, UNKNOWN)
  14. PEMETREXED [Concomitant]
     Active Substance: PEMETREXED
     Dosage: UNK
  15. PFIZER-BIONTECH COVID-19 VACCINE [Concomitant]
     Active Substance: TOZINAMERAN

REACTIONS (8)
  - COVID-19 [Fatal]
  - Optic neuritis [Unknown]
  - Nephropathy toxic [Unknown]
  - Renal impairment [Unknown]
  - Visual acuity reduced [Not Recovered/Not Resolved]
  - Drug ineffective [Unknown]
  - Disease progression [Unknown]
  - Off label use [Unknown]
